FAERS Safety Report 18391990 (Version 1)
Quarter: 2020Q4

REPORT INFORMATION
  Report Type: Spontaneous
  Country: US (occurrence: US)
  Receive Date: 20201015
  Receipt Date: 20201015
  Transmission Date: 20210114
  Serious: No
  Sender: FDA-Public Use
  Company Number: None

PATIENT
  Age: 44 Year
  Sex: Male

DRUGS (1)
  1. SOFOSBUVIR AND VELPATASVIR [Suspect]
     Active Substance: SOFOSBUVIR\VELPATASVIR
     Indication: CHRONIC HEPATITIS C
     Dosage: ?          OTHER DOSE:400-100 MG;?
     Route: 048
     Dates: start: 202010

REACTIONS (2)
  - Toothache [None]
  - Oral infection [None]

NARRATIVE: CASE EVENT DATE: 20201014
